FAERS Safety Report 8616480-1 (Version None)
Quarter: 2012Q3

REPORT INFORMATION
  Report Type: 
  Country: None (occurrence: None)
  Receive Date: 20120823
  Receipt Date: 20120822
  Transmission Date: 20120928
  Serious: Yes (Hospitalization, Other)
  Sender: FDA-Public Use
  Company Number: JP-JNJFOC-20120409308

PATIENT
  Sex: Female
  Weight: 47 kg

DRUGS (9)
  1. LEVOTHYROXINE SODIUM [Concomitant]
     Indication: HYPOTHYROIDISM
     Route: 048
  2. SIMPONI [Suspect]
     Indication: RHEUMATOID ARTHRITIS
     Route: 058
     Dates: start: 20120306
  3. ETODOLAC [Concomitant]
     Indication: RHEUMATOID ARTHRITIS
     Route: 048
     Dates: end: 20120406
  4. BONOTEO [Concomitant]
     Indication: OSTEOPOROSIS
     Route: 048
  5. SIMPONI [Suspect]
     Route: 058
     Dates: start: 20111111, end: 20120209
  6. RIMATIL [Suspect]
     Indication: RHEUMATOID ARTHRITIS
     Route: 048
  7. LANSOPRAZOLE [Concomitant]
     Indication: GASTRITIS
     Route: 048
  8. EDIROL [Concomitant]
     Indication: OSTEOPOROSIS
     Route: 048
  9. VITAMIN B12 [Concomitant]
     Indication: NEUROPATHY PERIPHERAL
     Route: 048

REACTIONS (2)
  - INTERSTITIAL LUNG DISEASE [None]
  - SKIN ULCER [None]
